FAERS Safety Report 21341155 (Version 1)
Quarter: 2022Q3

REPORT INFORMATION
  Report Type: Spontaneous
  Country: FR (occurrence: FR)
  Receive Date: 20220916
  Receipt Date: 20220916
  Transmission Date: 20221027
  Serious: Yes (Hospitalization)
  Sender: FDA-Public Use
  Company Number: None

PATIENT
  Age: 67 Year
  Sex: Male
  Weight: 70 kg

DRUGS (1)
  1. DIAZEPAM [Suspect]
     Active Substance: DIAZEPAM
     Indication: Mixed anxiety and depressive disorder
     Dosage: - FROM 12/07 TO 22/07: 15 MG/24 H (1-1-1), - FROM 07/22 TO 08/01: 10 MG/24H (0.5-0.5-1), - FROM 01/0
     Dates: start: 20220712, end: 20220803

REACTIONS (2)
  - Hepatic encephalopathy [Recovering/Resolving]
  - Overdose [Recovering/Resolving]

NARRATIVE: CASE EVENT DATE: 20220804
